FAERS Safety Report 4595109-6 (Version None)
Quarter: 2005Q1

REPORT INFORMATION
  Report Type: 
  Country: None (occurrence: None)
  Receive Date: 20050301
  Receipt Date: 20050208
  Transmission Date: 20050727
  Serious: Yes (Hospitalization)
  Sender: FDA-Public Use
  Company Number: JP-MERCK-0502USA01184

PATIENT
  Age: 84 Year
  Sex: Male

DRUGS (2)
  1. PRIMAXIN [Suspect]
     Indication: URINARY TRACT INFECTION
     Route: 030
     Dates: start: 20050127, end: 20050127
  2. PILSICAINIDE HYDROCHLORIDE [Suspect]
     Route: 048

REACTIONS (2)
  - ANAPHYLACTIC SHOCK [None]
  - PHARYNGEAL HAEMORRHAGE [None]
